FAERS Safety Report 15642098 (Version 3)
Quarter: 2018Q4

REPORT INFORMATION
  Report Type: Report from Study
  Country: DE (occurrence: DE)
  Receive Date: 20181121
  Receipt Date: 20181205
  Transmission Date: 20190205
  Serious: Yes (Life-Threatening, Hospitalization, Other)
  Sender: FDA-Public Use
  Company Number: DE-BRISTOL-MYERS SQUIBB COMPANY-BMS-2018-109252

PATIENT
  Age: 51 Year
  Sex: Male

DRUGS (3)
  1. IPILIMUMAB [Suspect]
     Active Substance: IPILIMUMAB
     Indication: MALIGNANT MELANOMA
     Dosage: 372 MG, Q3WK
     Route: 042
     Dates: start: 20180119, end: 20180323
  2. IMCGP 100 [Suspect]
     Active Substance: TEBENTAFUSP
     Indication: MALIGNANT MELANOMA
     Dosage: UNK
     Route: 065
  3. NIVOLUMAB [Suspect]
     Active Substance: NIVOLUMAB
     Indication: MALIGNANT MELANOMA
     Dosage: 369 MG, Q2WK
     Route: 042
     Dates: start: 20180119, end: 20180502

REACTIONS (8)
  - Malignant neoplasm progression [Recovered/Resolved]
  - Photosensitivity reaction [Unknown]
  - Erythema multiforme [Recovered/Resolved]
  - Tumour pain [Recovering/Resolving]
  - Skin hypopigmentation [Not Recovered/Not Resolved]
  - Cytokine release syndrome [Recovered/Resolved]
  - Fatigue [Not Recovered/Not Resolved]
  - Abscess soft tissue [Unknown]

NARRATIVE: CASE EVENT DATE: 20180120
